FAERS Safety Report 6633790-8 (Version None)
Quarter: 2010Q1

REPORT INFORMATION
  Report Type: 
  Country: None (occurrence: None)
  Receive Date: 20100315
  Receipt Date: 20100303
  Transmission Date: 20100710
  Serious: Yes (Other)
  Sender: FDA-Public Use
  Company Number: US-BAYER-201015477NA

PATIENT
  Age: 18 Year
  Sex: Female

DRUGS (2)
  1. OCELLA [Suspect]
     Indication: DRUG USE FOR UNKNOWN INDICATION
     Route: 048
     Dates: start: 20070901, end: 20080601
  2. YASMIN [Suspect]
     Indication: DRUG USE FOR UNKNOWN INDICATION
     Route: 048
     Dates: start: 20060201, end: 20070901

REACTIONS (3)
  - ARRHYTHMIA [None]
  - MITRAL VALVE PROLAPSE [None]
  - TACHYCARDIA [None]
